FAERS Safety Report 4464971-X (Version None)
Quarter: 2004Q4

REPORT INFORMATION
  Report Type: 
  Country: None (occurrence: None)
  Receive Date: 20041004
  Receipt Date: 20040429
  Transmission Date: 20050328
  Serious: Yes (Other)
  Sender: FDA-Public Use
  Company Number: 366461

PATIENT
  Age: 58 Year
  Sex: Male

DRUGS (10)
  1. COREG [Suspect]
     Dosage: 25MG TWICE PER DAY
     Route: 048
  2. INSULIN [Concomitant]
  3. METFORMIN [Concomitant]
  4. ZESTRIL [Concomitant]
  5. PROZAC [Concomitant]
  6. AMITRIPTYLINE HCL [Concomitant]
  7. ALPRAZOLAM [Concomitant]
  8. TORSEMIDE [Concomitant]
  9. LISINOPRIL [Concomitant]
  10. DILTIAZEM [Concomitant]

REACTIONS (3)
  - ASTHENIA [None]
  - CARDIAC FAILURE CONGESTIVE [None]
  - DYSPNOEA [None]
